FAERS Safety Report 12181924 (Version 2)
Quarter: 2016Q4

REPORT INFORMATION
  Report Type: Report from Study
  Country: US (occurrence: US)
  Receive Date: 20160315
  Receipt Date: 20161207
  Transmission Date: 20170207
  Serious: Yes (Hospitalization, Other)
  Sender: FDA-Public Use
  Company Number: US-GILEAD-2016-0202673

PATIENT
  Sex: Female

DRUGS (1)
  1. LEDIPASVIR/SOFOSBUVIR [Suspect]
     Active Substance: LEDIPASVIR\SOFOSBUVIR
     Indication: HEPATITIS C
     Dosage: 1 DF, QD
     Route: 048
     Dates: start: 20150601, end: 20150701

REACTIONS (4)
  - Glucose tolerance impaired [Unknown]
  - Transfusion [Unknown]
  - White blood cell count decreased [Unknown]
  - Vulval cancer [Unknown]

NARRATIVE: CASE EVENT DATE: 2015
